FAERS Safety Report 21702537 (Version 1)
Quarter: 2022Q4

REPORT INFORMATION
  Report Type: Spontaneous
  Country: US (occurrence: US)
  Receive Date: 20221208
  Receipt Date: 20221208
  Transmission Date: 20230113
  Serious: No
  Sender: FDA-Public Use
  Company Number: US-IBSA PHARMA INC.-2022IBS000137

PATIENT

DRUGS (2)
  1. TIROSINT [Suspect]
     Active Substance: LEVOTHYROXINE SODIUM
     Indication: Thyroid hormone replacement therapy
     Dosage: 175 ?G, QD
     Route: 048
     Dates: start: 2021
  2. TIROSINT [Suspect]
     Active Substance: LEVOTHYROXINE SODIUM
     Dosage: 175 MCG EVERY OTHER DAY
     Route: 048

REACTIONS (6)
  - Feeling abnormal [Recovering/Resolving]
  - Weight increased [Recovering/Resolving]
  - Alopecia [Recovering/Resolving]
  - Fatigue [Recovering/Resolving]
  - Blood thyroid stimulating hormone decreased [Unknown]
  - Blood thyroid stimulating hormone increased [Unknown]

NARRATIVE: CASE EVENT DATE: 20220401
